FAERS Safety Report 13922253 (Version 1)
Quarter: 2017Q3

REPORT INFORMATION
  Report Type: Spontaneous
  Country: US (occurrence: US)
  Receive Date: 20170830
  Receipt Date: 20170830
  Transmission Date: 20171127
  Serious: No
  Sender: FDA-Public Use
  Company Number: US-ENDO PHARMACEUTICALS INC-2016-005838

PATIENT
  Age: 38 Year
  Sex: Female
  Weight: 77.1 kg

DRUGS (2)
  1. SUMAVEL DOSEPRO [Suspect]
     Active Substance: SUMATRIPTAN SUCCINATE
     Indication: MIGRAINE
     Dosage: 6 MG, 1 INJ IMMEDIATELY ON ONSET OF MIGRAINE, UNKNOWN
     Route: 058
     Dates: start: 201605
  2. CAMBIA [Concomitant]
     Active Substance: DICLOFENAC POTASSIUM
     Indication: MIGRAINE

REACTIONS (6)
  - Migraine [Recovered/Resolved]
  - Device malfunction [Recovered/Resolved]
  - Injection site bruising [Unknown]
  - Drug dose omission [Recovered/Resolved]
  - Accidental exposure to product [Unknown]
  - Injection site pain [Unknown]

NARRATIVE: CASE EVENT DATE: 20160917
